APPROVED DRUG PRODUCT: AMLODIPINE BESYLATE
Active Ingredient: AMLODIPINE BESYLATE
Strength: EQ 2.5MG BASE
Dosage Form/Route: TABLET;ORAL
Application: A078453 | Product #001 | TE Code: AB
Applicant: ORBION PHARMACEUTICALS PRIVATE LTD
Approved: Jul 2, 2009 | RLD: No | RS: No | Type: RX